FAERS Safety Report 13702030 (Version 1)
Quarter: 2017Q2

REPORT INFORMATION
  Report Type: Spontaneous
  Country: US (occurrence: US)
  Receive Date: 20170629
  Receipt Date: 20170629
  Transmission Date: 20170830
  Serious: No
  Sender: FDA-Public Use
  Company Number: US-JNJFOC-20160815304

PATIENT
  Age: 50 Year
  Sex: Female
  Weight: 56.7 kg

DRUGS (4)
  1. NIZORAL [Concomitant]
     Active Substance: KETOCONAZOLE
     Dosage: NICKEL SIZE DOLLOP, FOR ABOUT A WEEK
     Route: 065
     Dates: start: 20160807
  2. NIZORAL A-D [Suspect]
     Active Substance: KETOCONAZOLE
     Route: 061
  3. NIZORAL [Concomitant]
     Active Substance: KETOCONAZOLE
     Dosage: NICKEL SIZE DOLLOP, FOR ABOUT A WEEK
     Route: 065
     Dates: start: 20160807
  4. NIZORAL A-D [Suspect]
     Active Substance: KETOCONAZOLE
     Indication: PRURITUS
     Dosage: NICKEL SIZE DOLLOP
     Route: 061
     Dates: start: 20160807, end: 20160816

REACTIONS (1)
  - Drug ineffective [Unknown]
